FAERS Safety Report 18639846 (Version 3)
Quarter: 2021Q1

REPORT INFORMATION
  Report Type: Spontaneous
  Country: DK (occurrence: DK)
  Receive Date: 20201220
  Receipt Date: 20210111
  Transmission Date: 20210419
  Serious: Yes (Other)
  Sender: FDA-Public Use
  Company Number: DK-UCBSA-2020053495

PATIENT

DRUGS (1)
  1. CIMZIA [Suspect]
     Active Substance: CERTOLIZUMAB PEGOL
     Indication: RHEUMATOID ARTHRITIS
     Dosage: UNKNOWN DOSE

REACTIONS (6)
  - Neoplasm malignant [Unknown]
  - Demyelination [Unknown]
  - Osteoporosis [Unknown]
  - Cardiovascular disorder [Unknown]
  - Herpes zoster [Unknown]
  - Infection [Unknown]
